FAERS Safety Report 8003394-3 (Version None)
Quarter: 2011Q4

REPORT INFORMATION
  Report Type: 
  Country: None (occurrence: None)
  Receive Date: 20111222
  Receipt Date: 20111217
  Transmission Date: 20120403
  Serious: Yes (Hospitalization)
  Sender: FDA-Public Use
  Company Number: US-US-EMD SERONO, INC.-234897J08USA

PATIENT
  Sex: Female
  Weight: 64 kg

DRUGS (8)
  1. DYAZIDE [Concomitant]
     Indication: HYPERTENSION
     Route: 048
  2. REBIF [Suspect]
     Indication: MULTIPLE SCLEROSIS
     Route: 058
     Dates: start: 20071120, end: 20111214
  3. ASPIRIN [Concomitant]
     Indication: HYPERTENSION
     Route: 048
  4. TOPROL-XL [Concomitant]
     Route: 065
     Dates: start: 20080401
  5. MAGNESIUM [Concomitant]
  6. TOPROL-XL [Concomitant]
     Indication: HYPERTENSION
     Route: 048
     Dates: end: 20080401
  7. POTASSIUM CHLORIDE [Concomitant]
     Indication: BLOOD POTASSIUM DECREASED
     Route: 048
  8. DYAZIDE [Concomitant]
     Route: 048

REACTIONS (3)
  - HEART RATE INCREASED [None]
  - CROHN'S DISEASE [None]
  - HEPATIC ENZYME INCREASED [None]
